FAERS Safety Report 17985496 (Version 2)
Quarter: 2021Q1

REPORT INFORMATION
  Report Type: Report from Study
  Country: GR (occurrence: GR)
  Receive Date: 20200706
  Receipt Date: 20210218
  Transmission Date: 20210419
  Serious: No
  Sender: FDA-Public Use
  Company Number: GR-JNJFOC-20200706308

PATIENT
  Age: 26 Year
  Sex: Male

DRUGS (3)
  1. STELARA [Suspect]
     Active Substance: USTEKINUMAB
     Dosage: 90 MG SC 8 WEEKS AFTER THE INITIAL IV DOSE, THEN EVERY 8 WEEKS THEREAFTER
     Route: 058
     Dates: start: 20200605, end: 20200605
  2. STELARA [Suspect]
     Active Substance: USTEKINUMAB
     Indication: CROHN^S DISEASE
     Route: 042
     Dates: start: 20200220, end: 20200220
  3. STELARA [Suspect]
     Active Substance: USTEKINUMAB
     Route: 058
     Dates: start: 20200605, end: 20200605

REACTIONS (4)
  - Fatigue [Recovered/Resolved]
  - Off label use [Unknown]
  - Cholelithiasis [Unknown]
  - Keratitis [Recovered/Resolved]

NARRATIVE: CASE EVENT DATE: 20200225
